FAERS Safety Report 8790432 (Version 1)
Quarter: 2012Q4

REPORT INFORMATION
  Report Type: Spontaneous
  Country: US (occurrence: None)
  Receive Date: 20120911
  Receipt Date: 20120911
  Transmission Date: 20130627
  Serious: Yes (Life-Threatening, Hospitalization, Other)
  Sender: FDA-Public Use
  Company Number: None

PATIENT
  Sex: Female
  Weight: 55.2 kg

DRUGS (1)
  1. SUPREP BOWEL PREP [Suspect]
     Indication: COLONOSCOPY
     Dosage: 2 bottle prep + 16oz water BID x2doses po
     Route: 048
     Dates: start: 20120906, end: 20120906

REACTIONS (5)
  - Wrong technique in drug usage process [None]
  - Fall [None]
  - Grand mal convulsion [None]
  - Unresponsive to stimuli [None]
  - Altered state of consciousness [None]
